FAERS Safety Report 6944681-7 (Version None)
Quarter: 2010Q3

REPORT INFORMATION
  Report Type: 
  Country: None (occurrence: None)
  Receive Date: 20100827
  Receipt Date: 20100823
  Transmission Date: 20110219
  Serious: Yes (Other)
  Sender: FDA-Public Use
  Company Number: US-WYE-H15734510

PATIENT
  Age: 61 Year
  Sex: Female

DRUGS (2)
  1. PREMPRO [Suspect]
  2. ACTIVELLA [Suspect]

REACTIONS (2)
  - BREAST CANCER METASTATIC [None]
  - LYMPHOEDEMA [None]
